FAERS Safety Report 14620315 (Version 1)
Quarter: 2018Q1

REPORT INFORMATION
  Report Type: Not Available
  Country: US (occurrence: US)
  Receive Date: 20180309
  Receipt Date: 20180309
  Transmission Date: 20180509
  Serious: Yes (Other)
  Sender: FDA-Public Use
  Company Number: US-C B FLEET CO INC-201802-US-000362

PATIENT
  Sex: Male

DRUGS (1)
  1. DEBROX [Suspect]
     Active Substance: CARBAMIDE PEROXIDE
     Indication: CERUMEN REMOVAL
     Dosage: USED 5 TO 6 DROPS IN LEFT EAR ONE TIME
     Route: 001
     Dates: start: 20180221, end: 20180221

REACTIONS (2)
  - Viral infection [None]
  - Facial paralysis [Recovering/Resolving]

NARRATIVE: CASE EVENT DATE: 20180222
